FAERS Safety Report 7313968-0 (Version None)
Quarter: 2011Q1

REPORT INFORMATION
  Report Type: 
  Country: None (occurrence: None)
  Receive Date: 20110225
  Receipt Date: 20110216
  Transmission Date: 20110831
  Serious: Yes (Other)
  Sender: FDA-Public Use
  Company Number: CA-JNJFOC-20110205856

PATIENT
  Sex: Female
  Weight: 86 kg

DRUGS (1)
  1. REMICADE [Suspect]
     Indication: COLITIS ULCERATIVE
     Dosage: INFUSTION INTERVAL IS EVERY 5 - 6 WEEKS, HAS HAD 19 INFUSIONS TO PRESENT
     Route: 042

REACTIONS (3)
  - MENSTRUAL DISORDER [None]
  - ARTHRALGIA [None]
  - MENORRHAGIA [None]
